FAERS Safety Report 8078320-1 (Version None)
Quarter: 2012Q1

REPORT INFORMATION
  Report Type: 
  Country: None (occurrence: None)
  Receive Date: 20120127
  Receipt Date: 20110329
  Transmission Date: 20120608
  Serious: No
  Sender: FDA-Public Use
  Company Number: US-ABBOTT-09P-163-0588067-00

PATIENT
  Sex: Female
  Weight: 108.51 kg

DRUGS (24)
  1. EVOXAC [Concomitant]
     Indication: DRY MOUTH
  2. PREDNISONE [Concomitant]
     Indication: PRODUCT USED FOR UNKNOWN INDICATION
  3. SOMA [Concomitant]
     Indication: PRODUCT USED FOR UNKNOWN INDICATION
     Dosage: 1/2 TABLET/DAY
  4. ARTIFICIAL TEARS [Concomitant]
     Indication: PRODUCT USED FOR UNKNOWN INDICATION
  5. COLCHICININE [Concomitant]
     Indication: VASCULITIS
  6. TRIBENZOR [Concomitant]
     Indication: HYPERTENSION
     Dosage: 40/5 MG QD; 1 IN 1 DAY
     Route: 048
  7. HUMIRA [Suspect]
     Route: 058
     Dates: start: 20090101, end: 20091201
  8. FOLIC ACID [Concomitant]
     Indication: RHEUMATOID ARTHRITIS
  9. SYNTHROID [Concomitant]
     Indication: PRODUCT USED FOR UNKNOWN INDICATION
  10. HUMIRA [Suspect]
     Route: 058
     Dates: start: 20040301
  11. CYMBALTA [Concomitant]
     Indication: PAIN
     Dosage: ULTRAM PRN
  12. LYRICA [Concomitant]
     Indication: PRODUCT USED FOR UNKNOWN INDICATION
  13. RITUXAN [Concomitant]
     Indication: RHEUMATOID ARTHRITIS
     Dates: start: 20091201, end: 20110101
  14. ULTRAM [Concomitant]
     Indication: PAIN
     Dosage: AS NEEDED
  15. RESTASIS [Concomitant]
     Indication: DRY EYE
     Dosage: 2 IN 1 DAY; EACH EYE
  16. HUMIRA [Suspect]
     Indication: RHEUMATOID ARTHRITIS
     Route: 058
     Dates: start: 20040101
  17. HUMIRA [Suspect]
     Route: 058
  18. PRILOSEC [Concomitant]
     Indication: PRODUCT USED FOR UNKNOWN INDICATION
  19. VIVELLE [Concomitant]
     Indication: HORMONE REPLACEMENT THERAPY
     Dosage: PATCH; 2 IN 1 WEEK
     Route: 062
  20. WELCHOL [Concomitant]
     Indication: BLOOD CHOLESTEROL INCREASED
  21. HUMIRA [Suspect]
     Route: 058
     Dates: start: 20110314
  22. KLONOPIN [Concomitant]
     Indication: SLEEP DISORDER THERAPY
     Dosage: 1-2 AS NEEDED
  23. METHOTREXATE [Concomitant]
     Indication: RHEUMATOID ARTHRITIS
     Route: 048
  24. URSO FORTE [Concomitant]
     Indication: HEPATIC CIRRHOSIS
     Route: 048

REACTIONS (7)
  - ARTHRITIS [None]
  - HEPATIC CIRRHOSIS [None]
  - JOINT SWELLING [None]
  - FIBROMYALGIA [None]
  - RASH MACULO-PAPULAR [None]
  - VASCULITIS [None]
  - RASH MACULAR [None]
